FAERS Safety Report 7411272-3 (Version None)
Quarter: 2011Q2

REPORT INFORMATION
  Report Type: 
  Country: None (occurrence: None)
  Receive Date: 20110413
  Receipt Date: 20100609
  Transmission Date: 20111010
  Serious: Yes (Other)
  Sender: FDA-Public Use
  Company Number: US-BRISTOL-MYERS SQUIBB COMPANY-15100852

PATIENT
  Age: 46 Year
  Sex: Male
  Weight: 114 kg

DRUGS (1)
  1. ERBITUX [Suspect]
     Indication: COLORECTAL CANCER
     Dosage: 1ST DOSE 800MG 2ND DOSE ON 14APR2010:500MG
     Route: 042
     Dates: start: 20100409

REACTIONS (1)
  - RASH MACULO-PAPULAR [None]
